FAERS Safety Report 9285665 (Version 1)
Quarter: 2013Q2

REPORT INFORMATION
  Report Type: Spontaneous
  Country: MT (occurrence: MT)
  Receive Date: 20130513
  Receipt Date: 20130513
  Transmission Date: 20140414
  Serious: Yes (Other)
  Sender: FDA-Public Use
  Company Number: MT-JNJFOC-20130500188

PATIENT
  Sex: 0

DRUGS (2)
  1. INFLIXIMAB, RECOMBINANT [Suspect]
     Indication: CROHN^S DISEASE
     Route: 042
  2. CORTICOSTEROID [Suspect]
     Indication: CROHN^S DISEASE
     Route: 065

REACTIONS (2)
  - Osteopenia [Unknown]
  - Osteoporosis [Unknown]
